FAERS Safety Report 12353843 (Version 2)
Quarter: 2016Q3

REPORT INFORMATION
  Report Type: Spontaneous
  Country: US (occurrence: US)
  Receive Date: 20160511
  Receipt Date: 20160704
  Transmission Date: 20161109
  Serious: No
  Sender: FDA-Public Use
  Company Number: US-JNJFOC-20160320904

PATIENT
  Sex: Female
  Weight: 61.24 kg

DRUGS (11)
  1. RESVERATROL [Concomitant]
     Active Substance: RESVERATROL
     Indication: CARDIOVASCULAR EVENT PROPHYLAXIS
     Dosage: DAILY
     Route: 048
     Dates: start: 2016
  2. COQ10 [Concomitant]
     Active Substance: UBIDECARENONE
     Indication: FIBROMYALGIA
     Dosage: DAILY
     Route: 048
     Dates: start: 2000
  3. COQ10 [Concomitant]
     Active Substance: UBIDECARENONE
     Indication: CARDIOVASCULAR EVENT PROPHYLAXIS
     Dosage: DAILY
     Route: 048
     Dates: start: 2000
  4. TRAMADOL ER [Suspect]
     Active Substance: TRAMADOL HYDROCHLORIDE
     Indication: PAIN
     Dosage: ONCE DAILY AT NIGHT
     Route: 048
  5. MIRALAX [Concomitant]
     Active Substance: POLYETHYLENE GLYCOL 3350
     Indication: CONSTIPATION
     Dosage: ^1 CAPFUL^ DAILY
     Route: 048
     Dates: start: 2000
  6. RESVERATROL [Concomitant]
     Active Substance: RESVERATROL
     Indication: PROPHYLAXIS
     Dosage: DAILY
     Route: 048
     Dates: start: 2016
  7. TRAMADOL ER [Suspect]
     Active Substance: TRAMADOL HYDROCHLORIDE
     Indication: PAIN
     Dosage: ONCE DAILY AT NIGHT
     Route: 048
  8. TRAMADOL ER [Suspect]
     Active Substance: TRAMADOL HYDROCHLORIDE
     Indication: PAIN
     Dosage: ONCE DAILY AT NIGHT
     Route: 048
  9. PREVACID [Concomitant]
     Active Substance: LANSOPRAZOLE
     Indication: OESOPHAGITIS
     Dosage: TWICE DAILY
     Route: 048
  10. S-ADENOSYLMETHIONINE SULFATE P-TOLUENESULFONATE [Concomitant]
     Active Substance: ADEMETIONINE SULFATE TOSILATE
     Indication: FIBROMYALGIA
     Dosage: TWICE DAILY
     Route: 048
     Dates: start: 1994
  11. ZINC [Concomitant]
     Active Substance: ZINC\ZINC CHLORIDE
     Indication: PROPHYLAXIS
     Dosage: DAILY
     Route: 048
     Dates: start: 2004

REACTIONS (9)
  - Drug ineffective [Not Recovered/Not Resolved]
  - Headache [Unknown]
  - Neck pain [Unknown]
  - Fatigue [Not Recovered/Not Resolved]
  - Hypersensitivity [Not Recovered/Not Resolved]
  - Inflammation [Not Recovered/Not Resolved]
  - Activities of daily living impaired [Not Recovered/Not Resolved]
  - Pain [Not Recovered/Not Resolved]
  - Breakthrough pain [Not Recovered/Not Resolved]
